FAERS Safety Report 5017146-X (Version None)
Quarter: 2006Q2

REPORT INFORMATION
  Report Type: 
  Country: None (occurrence: None)
  Receive Date: 20060602
  Receipt Date: 20060526
  Transmission Date: 20061013
  Serious: Yes (Hospitalization, Other)
  Sender: FDA-Public Use
  Company Number: GB-BOEHRINGER INGELHEIM PHARMACEUTICALS, INC.-2006-UK-02632GL

PATIENT
  Sex: Male

DRUGS (4)
  1. TIOTROPIUM (00015/0190/A) [Suspect]
     Indication: CHRONIC OBSTRUCTIVE PULMONARY DISEASE
     Route: 055
     Dates: start: 20060301, end: 20060315
  2. TIOTROPIUM (00015/0190/A) [Suspect]
     Route: 055
     Dates: start: 20060424, end: 20060510
  3. SALMETEROL/FLUTICASONE PROPIONATE (SERETIDE) [Suspect]
     Indication: CHRONIC OBSTRUCTIVE PULMONARY DISEASE
     Dosage: 50/500MG
     Route: 055
     Dates: start: 20060301, end: 20060315
  4. SALMETEROL/FLUTICASONE PROPIONATE (SERETIDE) [Suspect]
     Dosage: 500/50MG
     Dates: start: 20060329, end: 20060412

REACTIONS (2)
  - HYPONATRAEMIA [None]
  - LOWER RESPIRATORY TRACT INFECTION [None]
